FAERS Safety Report 4788512-2 (Version None)
Quarter: 2005Q4

REPORT INFORMATION
  Report Type: 
  Country: None (occurrence: None)
  Receive Date: 20051005
  Receipt Date: 20050620
  Transmission Date: 20060501
  Serious: Yes (Hospitalization)
  Sender: FDA-Public Use
  Company Number: FR-SANOFI-SYNTHELABO-A02200501625

PATIENT
  Age: 18 Year
  Sex: Female

DRUGS (3)
  1. PLAQUENIL [Suspect]
     Indication: NEUROPSYCHIATRIC LUPUS
     Route: 048
     Dates: start: 20050101
  2. BACTRIM [Suspect]
     Indication: DRUG USE FOR UNKNOWN INDICATION
     Dosage: UNK
     Route: 065
     Dates: start: 20050424, end: 20050506
  3. ENDOXAN [Concomitant]
     Indication: DRUG USE FOR UNKNOWN INDICATION
     Dosage: UNK
     Route: 051
     Dates: start: 20050504, end: 20050504

REACTIONS (1)
  - IRON DEFICIENCY ANAEMIA [None]
